FAERS Safety Report 20006272 (Version 1)
Quarter: 2021Q4

REPORT INFORMATION
  Report Type: Spontaneous
  Country: US (occurrence: DE)
  Receive Date: 20211028
  Receipt Date: 20211028
  Transmission Date: 20220303
  Serious: Yes (Other)
  Sender: FDA-Public Use
  Company Number: DE-ASTELLAS-2021US040438

PATIENT
  Age: 56 Year
  Sex: Male

DRUGS (6)
  1. XTANDI [Suspect]
     Active Substance: ENZALUTAMIDE
     Indication: Product used for unknown indication
     Route: 065
     Dates: start: 202105
  2. TRENANTONE [Concomitant]
     Active Substance: LEUPROLIDE ACETATE
     Indication: Product used for unknown indication
     Dosage: UNK UNK, UNKNOWN FREQ.
     Route: 065
  3. BICALUTAMIDE [Concomitant]
     Active Substance: BICALUTAMIDE
     Indication: Product used for unknown indication
     Dosage: 500 MG, UNKNOWN FREQ. (2X TGL)
     Route: 065
  4. CALCIUM\CHOLECALCIFEROL [Concomitant]
     Active Substance: CALCIUM\CHOLECALCIFEROL
     Indication: Product used for unknown indication
     Dosage: UNK UNK, UNKNOWN FREQ.
     Route: 065
  5. VENLAFAXINE [Concomitant]
     Active Substance: VENLAFAXINE HYDROCHLORIDE
     Indication: Product used for unknown indication
     Route: 065
  6. DOCETAXEL [Concomitant]
     Active Substance: DOCETAXEL
     Indication: Product used for unknown indication
     Dosage: UNK UNK, UNKNOWN FREQ. (2L)
     Route: 065

REACTIONS (26)
  - Erectile dysfunction [Unknown]
  - Performance status decreased [Unknown]
  - Disturbance in attention [Unknown]
  - Feminisation acquired [Unknown]
  - Gynaecomastia [Unknown]
  - Pruritus [Unknown]
  - Headache [Unknown]
  - Loss of libido [Unknown]
  - Anorgasmia [Unknown]
  - Swelling [Unknown]
  - Dyspnoea [Unknown]
  - Diarrhoea [Unknown]
  - Arthralgia [Unknown]
  - Myalgia [Unknown]
  - Tension [Unknown]
  - Dry skin [Unknown]
  - Rash [Unknown]
  - Weight increased [Unknown]
  - Temperature intolerance [Unknown]
  - Depression [Unknown]
  - Memory impairment [Unknown]
  - Aphasia [Unknown]
  - Fatigue [Unknown]
  - Mobility decreased [Unknown]
  - Hypoaesthesia [Unknown]
  - Sleep disorder [Unknown]
